FAERS Safety Report 8845788 (Version 2)
Quarter: 2012Q4

REPORT INFORMATION
  Report Type: 
  Country: US (occurrence: US)
  Receive Date: 20121017
  Receipt Date: 20121213
  Transmission Date: 20130627
  Serious: Yes (Other)
  Sender: FDA-Public Use
  Company Number: US-PFIZER INC-2012257275

PATIENT
  Age: 68 Year
  Sex: Female
  Weight: 90.7 kg

DRUGS (7)
  1. ATORVASTATIN CALCIUM [Suspect]
     Dosage: UNK, 1x/day
     Dates: end: 2012
  2. LIPITOR [Suspect]
     Dosage: 40 mg, UNK
  3. ATENOLOL [Concomitant]
     Dosage: UNK
  4. LASIX [Concomitant]
     Dosage: 20 mg, UNK
  5. GLUCOPHAGE [Concomitant]
     Dosage: UNK
  6. ACTOS [Concomitant]
     Dosage: UNK
  7. ALTACE [Concomitant]
     Dosage: UNK

REACTIONS (5)
  - Epilepsy [Unknown]
  - Palpitations [Unknown]
  - Muscle spasms [Unknown]
  - Malaise [Unknown]
  - Ear disorder [Unknown]
